FAERS Safety Report 25691626 (Version 1)
Quarter: 2025Q3

REPORT INFORMATION
  Report Type: Spontaneous
  Country: EU (occurrence: EU)
  Receive Date: 20250818
  Receipt Date: 20250818
  Transmission Date: 20251020
  Serious: Yes (Hospitalization, Other)
  Sender: NORDIC PHARMA
  Company Number: EU-NORDICGR-063555

PATIENT
  Age: 61 Year
  Sex: Male

DRUGS (3)
  1. METHOTREXATE [Suspect]
     Active Substance: METHOTREXATE
     Indication: Rheumatoid arthritis
     Route: 065
  2. Long-acting muscarinic antagonist [Concomitant]
     Indication: Chronic obstructive pulmonary disease
     Route: 055
  3. Long-acting beta-2 agonist [Concomitant]
     Indication: Chronic obstructive pulmonary disease
     Route: 055

REACTIONS (1)
  - Lung adenocarcinoma [Unknown]

NARRATIVE: CASE EVENT DATE: 20250201
